FAERS Safety Report 8901269 (Version 2)
Quarter: 2012Q4

REPORT INFORMATION
  Report Type: 
  Country: GR (occurrence: GR)
  Receive Date: 20121109
  Receipt Date: 20121109
  Transmission Date: 20130627
  Serious: Yes (Hospitalization)
  Sender: FDA-Public Use
  Company Number: GR-ROCHE-1153316

PATIENT
  Age: 64 Year
  Sex: Female

DRUGS (6)
  1. OMALIZUMAB [Suspect]
     Indication: PRODUCT USED FOR UNKNOWN INDICATION
     Route: 065
  2. SINGULAIR [Concomitant]
  3. ATROVENT [Concomitant]
     Route: 065
  4. ISOPTIN [Concomitant]
  5. NEXIUM [Concomitant]
  6. RIOPAN [Concomitant]
     Route: 065

REACTIONS (2)
  - Bronchospasm [Unknown]
  - Dyspnoea [Unknown]
